FAERS Safety Report 25844591 (Version 2)
Quarter: 2025Q4

REPORT INFORMATION
  Report Type: Report from Study
  Country: CA (occurrence: CA)
  Receive Date: 20250925
  Receipt Date: 20251009
  Transmission Date: 20260117
  Serious: No
  Sender: JOHNSON AND JOHNSON
  Company Number: CA-JNJFOC-20250934175

PATIENT
  Age: 93 Year
  Sex: Female

DRUGS (1)
  1. SIMPONI [Suspect]
     Active Substance: GOLIMUMAB
     Indication: Psoriatic arthropathy
     Dosage: STRENGTH: 50.00 MG / 0.50 ML
     Route: 058

REACTIONS (2)
  - Product dose omission issue [Unknown]
  - Device failure [Unknown]

NARRATIVE: CASE EVENT DATE: 20250919
